FAERS Safety Report 8906945 (Version 1)
Quarter: 2012Q4

REPORT INFORMATION
  Report Type: 
  Country: GB (occurrence: GB)
  Receive Date: 20121114
  Receipt Date: 20121114
  Transmission Date: 20130627
  Serious: Yes (Life-Threatening)
  Sender: FDA-Public Use
  Company Number: GB-NAPPMUNDI-GBR-2012-0012050

PATIENT
  Age: 37 Year
  Sex: Female
  Weight: 59 kg

DRUGS (3)
  1. MORPHINE SULFATE [Suspect]
     Indication: PRODUCT USED FOR UNKNOWN INDICATION
     Dosage: UNK
     Dates: start: 20121023
  2. CO-CODAMOL [Concomitant]
     Dosage: UNK
     Dates: start: 20121016
  3. OVRANETTE [Concomitant]
     Dosage: UNK
     Dates: start: 20120918

REACTIONS (1)
  - Swelling face [Recovered/Resolved]
